FAERS Safety Report 10866220 (Version 1)
Quarter: 2015Q1

REPORT INFORMATION
  Report Type: Spontaneous
  Country: US (occurrence: None)
  Receive Date: 20150219
  Receipt Date: 20150219
  Transmission Date: 20150721
  Serious: Yes (Life-Threatening, Hospitalization)
  Sender: FDA-Public Use
  Company Number: None

PATIENT
  Age: 40 Year
  Sex: Female
  Weight: 61.69 kg

DRUGS (3)
  1. TIZANIDINE (TIZANIDINE) [Suspect]
     Active Substance: TIZANIDINE
     Indication: MUSCLE SPASMS
     Dosage: 1 PILL, THREE TIMES DAILY, TAKEN BY MOUTH
     Route: 048
     Dates: start: 20140616, end: 20140811
  2. PREDNISONE IMURAN [Concomitant]
  3. MILK THISTLE [Concomitant]
     Active Substance: MILK THISTLE

REACTIONS (2)
  - Autoimmune hepatitis [None]
  - Hepatic failure [None]

NARRATIVE: CASE EVENT DATE: 20140819
